FAERS Safety Report 17753410 (Version 1)
Quarter: 2020Q2

REPORT INFORMATION
  Report Type: Spontaneous
  Country: US (occurrence: US)
  Receive Date: 20200506
  Receipt Date: 20200506
  Transmission Date: 20200714
  Serious: No
  Sender: FDA-Public Use
  Company Number: US-ROCHE-2558994

PATIENT
  Sex: Male

DRUGS (1)
  1. ESBRIET [Suspect]
     Active Substance: PIRFENIDONE
     Indication: OBESITY
     Dosage: TAKE 1 TABLET THRICE A DAY FOR WEEK, TAKE 2 TABLETS, THRICE A DAY FOR WEEK, TAKE 3 TABLETS, THRICE A
     Route: 048

REACTIONS (2)
  - Middle insomnia [Not Recovered/Not Resolved]
  - Asthenia [Not Recovered/Not Resolved]
